FAERS Safety Report 5114931-0 (Version None)
Quarter: 2006Q3

REPORT INFORMATION
  Report Type: 
  Country: None (occurrence: None)
  Receive Date: 20060922
  Receipt Date: 20060915
  Transmission Date: 20061208
  Serious: Yes (Hospitalization)
  Sender: FDA-Public Use
  Company Number: TPA2006A01177

PATIENT
  Age: 63 Year
  Sex: Male
  Weight: 88.2 kg

DRUGS (6)
  1. PIOGLITAZONE HCL [Suspect]
     Indication: GLUCOSE TOLERANCE IMPAIRED
     Dosage: 45 MG, 1 IN 1 D, PER ORAL
     Route: 048
     Dates: start: 20041125
  2. LOTREL [Suspect]
     Indication: HYPERTENSION
     Dosage: 5/20, 2 IN 1 D, PER ORAL
     Route: 048
     Dates: start: 20050427, end: 20060511
  3. LOPID [Concomitant]
  4. VERAPAMIL [Concomitant]
  5. FLOMAX [Concomitant]
  6. ASPIRIN [Concomitant]

REACTIONS (8)
  - ANGIONEUROTIC OEDEMA [None]
  - BRONCHOSPASM [None]
  - CHOKING [None]
  - COUGH [None]
  - DIZZINESS [None]
  - DYSPNOEA [None]
  - POSTNASAL DRIP [None]
  - THROAT TIGHTNESS [None]
